FAERS Safety Report 16767866 (Version 1)
Quarter: 2019Q3

REPORT INFORMATION
  Report Type: Spontaneous
  Country: GB (occurrence: GB)
  Receive Date: 20190903
  Receipt Date: 20190903
  Transmission Date: 20191005
  Serious: Yes (Other)
  Sender: FDA-Public Use
  Company Number: GB-TEVA-2019-GB-1100557

PATIENT
  Age: 67 Year
  Sex: Female
  Weight: 41 kg

DRUGS (12)
  1. COTRIMOXAZOLE [Concomitant]
     Active Substance: SULFAMETHOXAZOLE\TRIMETHOPRIM
     Dosage: MONDAY, WEDNESDAY AND FRIDAY
     Dates: start: 20181123, end: 20190617
  2. PREDNISOLONE. [Concomitant]
     Active Substance: PREDNISOLONE
     Dosage: TAKE 6 DAILY FOR 3 DAYS, 5 FOR 3 DAYS, 4 FOR 3 DAYS, 2 FOR 3 DAYS, 1 FOR 3 DAYS
     Dates: start: 20190719
  3. GALEN LTD SALINE [Concomitant]
     Dosage: ONE FOUR TIMES A DAY
     Dates: start: 20190619, end: 20190717
  4. QUININE [Concomitant]
     Active Substance: QUININE
     Dosage: AT NIGHT
     Dates: start: 20180521
  5. SALBUTAMOL [Concomitant]
     Active Substance: ALBUTEROL
     Dosage: 1 DOSE 3-4 TIMES/DAY
     Route: 055
     Dates: start: 20181210
  6. ALENDRONIC ACID [Concomitant]
     Active Substance: ALENDRONIC ACID
     Dates: start: 20190103
  7. SALAMOL [Concomitant]
     Active Substance: ALBUTEROL
     Route: 055
     Dates: start: 20181210
  8. ATORVASTATIN [Suspect]
     Active Substance: ATORVASTATIN
     Route: 065
     Dates: start: 20190701
  9. TRIMBOW [Concomitant]
     Active Substance: BECLOMETHASONE DIPROPIONATE\FORMOTEROL FUMARATE\GLYCOPYRROLATE
     Dosage: PUFFS
     Dates: start: 20190109
  10. ADCAL [Concomitant]
     Dates: start: 20180521
  11. CARBOCISTEINE [Concomitant]
     Active Substance: CARBOCYSTEINE
     Dates: start: 20190311
  12. LAXIDO [Concomitant]
     Active Substance: POLYETHYLENE GLYCOL 3350\POTASSIUM CHLORIDE\SODIUM BICARBONATE\SODIUM CHLORIDE
     Dosage: TAKE ONE OR TWO DAILY
     Dates: start: 20180314

REACTIONS (3)
  - Condition aggravated [Recovered/Resolved]
  - Wheezing [Recovered/Resolved]
  - Dyspnoea [Recovered/Resolved]
